FAERS Safety Report 8392510 (Version 2)
Quarter: 2013Q2

REPORT INFORMATION
  Report Type: Spontaneous
  Country: US (occurrence: US)
  Receive Date: 20120206
  Receipt Date: 20130513
  Transmission Date: 20140414
  Serious: Yes (Hospitalization, Other)
  Sender: FDA-Public Use
  Company Number: US-ROCHE-1006265

PATIENT
  Age: 42 Year
  Sex: Female
  Weight: 82.17 kg

DRUGS (13)
  1. ACCUTANE [Suspect]
     Indication: PRODUCT USED FOR UNKNOWN INDICATION
     Route: 065
     Dates: start: 199810, end: 199911
  2. ACCUTANE [Suspect]
     Route: 065
     Dates: start: 200104, end: 200112
  3. VIOXX [Concomitant]
  4. AMITRIPTYLINE [Concomitant]
  5. CELEXA [Concomitant]
  6. GUAIFENESIN [Concomitant]
  7. IMITREX [Concomitant]
  8. ALLEGRA [Concomitant]
  9. ULTRAM [Concomitant]
  10. ALPRAZOLAM [Concomitant]
  11. METHYLPREDNISOLON [Concomitant]
  12. CHOLESTYRAMINE [Concomitant]
  13. ACLOVATE [Concomitant]

REACTIONS (8)
  - Colitis ulcerative [Unknown]
  - Intestinal obstruction [Unknown]
  - Cholelithiasis [Unknown]
  - Vaginal fistula [Unknown]
  - Depression [Unknown]
  - Inflammatory bowel disease [Unknown]
  - Tachycardia [Unknown]
  - Irritable bowel syndrome [Unknown]
